FAERS Safety Report 6040843-4 (Version None)
Quarter: 2009Q1

REPORT INFORMATION
  Report Type: 
  Country: None (occurrence: None)
  Receive Date: 20090116
  Receipt Date: 20080724
  Transmission Date: 20090719
  Serious: No
  Sender: FDA-Public Use
  Company Number: US-BRISTOL-MYERS SQUIBB COMPANY-14223473

PATIENT
  Age: 27 Year
  Sex: Male

DRUGS (4)
  1. ABILIFY [Suspect]
     Indication: BIPOLAR DISORDER
     Route: 048
     Dates: start: 20080401, end: 20080417
  2. COGENTIN [Concomitant]
  3. BENADRYL [Concomitant]
  4. HYDROXYZINE [Concomitant]

REACTIONS (1)
  - GENERALISED OEDEMA [None]
